FAERS Safety Report 14343990 (Version 1)
Quarter: 2017Q4

REPORT INFORMATION
  Report Type: Spontaneous
  Country: US (occurrence: US)
  Receive Date: 20171229
  Receipt Date: 20171229
  Transmission Date: 20180321
  Serious: Yes (Other)
  Sender: FDA-Public Use
  Company Number: None

PATIENT
  Age: 29 Year
  Sex: Female
  Weight: 50.35 kg

DRUGS (3)
  1. TORADOL [Suspect]
     Active Substance: KETOROLAC TROMETHAMINE
     Indication: PROPHYLAXIS
     Dosage: TORADOL 10 MG, 2 DAYS EVERY 4 WEEKS
     Route: 042
     Dates: start: 20171211, end: 20171212
  2. OCTAGAM IMMUNE GLOBULIN (HUMAN) [Suspect]
     Active Substance: HUMAN IMMUNOGLOBULIN G
     Indication: MYASTHENIA GRAVIS
     Dosage: OCTAGAM 30 GRAMS, 2 DAYS EVERY 4 WEEKS, IV
     Route: 042
     Dates: start: 20171211, end: 20171212
  3. TORADOL [Suspect]
     Active Substance: KETOROLAC TROMETHAMINE
     Indication: HEADACHE
     Dosage: TORADOL 10 MG, 2 DAYS EVERY 4 WEEKS
     Route: 042
     Dates: start: 20171211, end: 20171212

REACTIONS (3)
  - Pyrexia [None]
  - Headache [None]
  - Chills [None]

NARRATIVE: CASE EVENT DATE: 20171212
